FAERS Safety Report 16376386 (Version 2)
Quarter: 2019Q2

REPORT INFORMATION
  Report Type: Report from Study
  Country: CA (occurrence: CA)
  Receive Date: 20190531
  Receipt Date: 20190605
  Transmission Date: 20190711
  Serious: Yes (Other)
  Sender: FDA-Public Use
  Company Number: CA-SA-2019SA147522

PATIENT
  Age: 29 Year
  Sex: Female

DRUGS (1)
  1. THYROTROPIN ALFA [Suspect]
     Active Substance: THYROTROPIN ALFA
     Indication: DIAGNOSTIC PROCEDURE
     Dosage: 0.9 MGX2 VIALS
     Route: 030
     Dates: start: 20190527, end: 20190528

REACTIONS (1)
  - Syncope [Recovered/Resolved]

NARRATIVE: CASE EVENT DATE: 20190527
